FAERS Safety Report 5948157-5 (Version None)
Quarter: 2008Q4

REPORT INFORMATION
  Report Type: 
  Country: None (occurrence: None)
  Receive Date: 20081111
  Receipt Date: 20081031
  Transmission Date: 20090506
  Serious: Yes (Death)
  Sender: FDA-Public Use
  Company Number: CA-JNJFOC-20081100668

PATIENT
  Sex: Female
  Weight: 71 kg

DRUGS (2)
  1. REMICADE [Suspect]
     Indication: CROHN'S DISEASE
     Dosage: TOTAL 23 DOSES
     Route: 042
  2. BENADRYL [Concomitant]
     Indication: PREMEDICATION
     Route: 048

REACTIONS (1)
  - DEATH [None]
